FAERS Safety Report 9467210 (Version 1)
Quarter: 2013Q3

REPORT INFORMATION
  Report Type: Spontaneous
  Country: US (occurrence: US)
  Receive Date: 20130821
  Receipt Date: 20130821
  Transmission Date: 20140515
  Serious: No
  Sender: FDA-Public Use
  Company Number: US-B.I. PHARMACEUTICALS,INC./RIDGEFIELD-2013-BI-24841BP

PATIENT
  Age: 85 Year
  Sex: Female
  Weight: 79 kg

DRUGS (2)
  1. PRADAXA [Suspect]
     Indication: ATRIAL FIBRILLATION
     Dosage: 300 MG
     Route: 048
     Dates: start: 201307
  2. LOSARTAN HCTZ [Concomitant]
     Indication: HYPERTENSION
     Dosage: (TABLET) STRENGTH: 50/12.5 MG; DAILY DOSE: 50/12.5 MG
     Route: 048

REACTIONS (3)
  - Deafness unilateral [Not Recovered/Not Resolved]
  - Tinnitus [Recovered/Resolved]
  - Deafness unilateral [Not Recovered/Not Resolved]
